FAERS Safety Report 19974548 (Version 2)
Quarter: 2022Q4

REPORT INFORMATION
  Report Type: Spontaneous
  Country: CA (occurrence: CA)
  Receive Date: 20211020
  Receipt Date: 20221124
  Transmission Date: 20230113
  Serious: Yes (Other)
  Sender: FDA-Public Use
  Company Number: CA-PFIZER INC-2020106289

PATIENT
  Age: 72 Year
  Sex: Female

DRUGS (5)
  1. XELJANZ [Suspect]
     Active Substance: TOFACITINIB CITRATE
     Indication: Rheumatoid arthritis
     Dosage: 5 MG, 2X/DAY
     Route: 048
     Dates: start: 20180629, end: 20190314
  2. XELJANZ [Suspect]
     Active Substance: TOFACITINIB CITRATE
     Dosage: 5 MG, 1X/DAY  60 TABS
     Route: 048
     Dates: start: 20190314, end: 20200308
  3. XELJANZ [Suspect]
     Active Substance: TOFACITINIB CITRATE
     Dosage: 5 MG, 1X/DAY  60 TABS
     Route: 048
     Dates: start: 2020
  4. CELEBREX [Concomitant]
     Active Substance: CELECOXIB
     Indication: Rheumatoid arthritis
     Dosage: 1 DF, UNK DOSE
  5. HYDROXYCHLOROQUINE [Concomitant]
     Active Substance: HYDROXYCHLOROQUINE
     Dosage: 200 MG, 1X/DAY

REACTIONS (18)
  - Gastric infection [Recovered/Resolved]
  - Meningitis [Not Recovered/Not Resolved]
  - Hemiplegia [Unknown]
  - Parietal lobe epilepsy [Unknown]
  - Loss of consciousness [Recovered/Resolved]
  - Metastases to meninges [Recovering/Resolving]
  - Subdural hygroma [Unknown]
  - Generalised tonic-clonic seizure [Unknown]
  - Noninfective encephalitis [Not Recovered/Not Resolved]
  - Therapeutic product effect incomplete [Unknown]
  - Sleep paralysis [Recovered/Resolved]
  - Muscular weakness [Recovering/Resolving]
  - Ataxia [Recovering/Resolving]
  - Fall [Recovering/Resolving]
  - White blood cell count increased [Unknown]
  - Protein total abnormal [Unknown]
  - Lumbar puncture [Unknown]
  - Viral infection [Unknown]

NARRATIVE: CASE EVENT DATE: 20200801
